FAERS Safety Report 4557598-2 (Version None)
Quarter: 2005Q1

REPORT INFORMATION
  Report Type: 
  Country: None (occurrence: None)
  Receive Date: 20050118
  Receipt Date: 20050103
  Transmission Date: 20050727
  Serious: Yes (Hospitalization)
  Sender: FDA-Public Use
  Company Number: 141072USA

PATIENT
  Age: 24 Month
  Sex: Female

DRUGS (1)
  1. CARBAMAZEPINE [Suspect]
     Dates: start: 20030815

REACTIONS (3)
  - ACCIDENTAL OVERDOSE [None]
  - LETHARGY [None]
  - MENTAL STATUS CHANGES [None]
